FAERS Safety Report 11310155 (Version 1)
Quarter: 2015Q3

REPORT INFORMATION
  Report Type: Spontaneous
  Country: US (occurrence: US)
  Receive Date: 20150724
  Receipt Date: 20150724
  Transmission Date: 20151125
  Serious: Yes (Other)
  Sender: FDA-Public Use
  Company Number: US-ELI_LILLY_AND_COMPANY-US201507006200

PATIENT
  Sex: Male

DRUGS (4)
  1. LEVEMIR [Concomitant]
     Active Substance: INSULIN DETEMIR
  2. VICTOZA [Concomitant]
     Active Substance: LIRAGLUTIDE
  3. IRON                               /00023503/ [Concomitant]
     Active Substance: IRON
  4. HUMALOG [Suspect]
     Active Substance: INSULIN LISPRO
     Indication: TYPE 2 DIABETES MELLITUS
     Dosage: 18 U, TID
     Route: 065

REACTIONS (3)
  - Macular degeneration [Not Recovered/Not Resolved]
  - Cataract [Unknown]
  - Visual acuity reduced [Not Recovered/Not Resolved]
